FAERS Safety Report 4394997-6 (Version None)
Quarter: 2004Q2

REPORT INFORMATION
  Report Type: 
  Country: None (occurrence: None)
  Receive Date: 20040621
  Receipt Date: 20010904
  Transmission Date: 20050107
  Serious: Yes (Other)
  Sender: FDA-Public Use
  Company Number: KII-2001-0009682

PATIENT
  Sex: Male

DRUGS (2)
  1. OXYCONTIN [Suspect]
     Indication: PAIN
     Dosage: 160 MG, Q12H; UNKNOWN
     Route: 065
  2. PERCOCET [Suspect]
     Indication: PAIN
     Dosage: UNK UNK, Q6H PRN; UNKNOWN
     Route: 065

REACTIONS (1)
  - DRUG DEPENDENCE [None]
